FAERS Safety Report 24030024 (Version 1)
Quarter: 2024Q2

REPORT INFORMATION
  Report Type: Spontaneous
  Country: BR (occurrence: BR)
  Receive Date: 20240628
  Receipt Date: 20240628
  Transmission Date: 20240715
  Serious: Yes (Hospitalization)
  Sender: FDA-Public Use
  Company Number: BR-Merck Healthcare KGaA-2024031604

PATIENT
  Age: 63 Year
  Sex: Female

DRUGS (2)
  1. LEVOTHYROXINE SODIUM [Suspect]
     Active Substance: LEVOTHYROXINE SODIUM
     Indication: Thyroid hormone replacement therapy
     Dosage: ONE TABLET PER DAY
     Route: 048
     Dates: start: 20000620, end: 20240620
  2. SOTALOL [Suspect]
     Active Substance: SOTALOL
     Indication: Arrhythmia
     Dosage: MANUFACTURE DATE: JAN-2024 TAKES HALF AT 10:00 IN THE MORNING AND THE OTHER HALF AT 22:00 AT NIGHT.
     Route: 048
     Dates: start: 20000607, end: 20240620

REACTIONS (1)
  - Thyroid cancer [Recovered/Resolved]

NARRATIVE: CASE EVENT DATE: 20120101
